FAERS Safety Report 4700042-2 (Version None)
Quarter: 2005Q2

REPORT INFORMATION
  Report Type: 
  Country: None (occurrence: None)
  Receive Date: 20050627
  Receipt Date: 20050523
  Transmission Date: 20051028
  Serious: Yes (Other)
  Sender: FDA-Public Use
  Company Number: US-GLAXOSMITHKLINE-A0559768A

PATIENT
  Age: 85 Year
  Sex: Male
  Weight: 83.6 kg

DRUGS (8)
  1. COREG [Suspect]
     Indication: HYPERTENSION
     Route: 048
  2. LASIX [Concomitant]
     Dosage: 40MG PER DAY
     Route: 048
     Dates: start: 20000101
  3. POTASSIUM CHLORIDE [Concomitant]
     Dates: start: 20000101
  4. XANAX [Concomitant]
     Dates: start: 20000101
  5. GLYBURIDE [Concomitant]
     Dosage: 5MG PER DAY
     Dates: start: 20000101
  6. COUMADIN [Concomitant]
     Dosage: 5MG PER DAY
     Dates: start: 20000101
  7. ALEVE [Concomitant]
  8. ULTRACET [Concomitant]

REACTIONS (6)
  - ANOREXIA [None]
  - HEPATIC ENZYME INCREASED [None]
  - HEPATITIS CHOLESTATIC [None]
  - JAUNDICE [None]
  - NAUSEA [None]
  - PYREXIA [None]
